FAERS Safety Report 26150713 (Version 1)
Quarter: 2025Q4

REPORT INFORMATION
  Report Type: Spontaneous
  Country: US (occurrence: US)
  Receive Date: 20251212
  Receipt Date: 20251212
  Transmission Date: 20260118
  Serious: No
  Sender: EISAI
  Company Number: US-Eisai-EC-2025-200671

PATIENT
  Age: 30 Year
  Sex: Male

DRUGS (3)
  1. DAYVIGO [Suspect]
     Active Substance: LEMBOREXANT
     Indication: Insomnia
     Route: 048
     Dates: start: 20250127, end: 20250220
  2. DAYVIGO [Suspect]
     Active Substance: LEMBOREXANT
     Route: 048
     Dates: start: 20250221
  3. KETAMINE [Concomitant]
     Active Substance: KETAMINE
     Indication: Depression

REACTIONS (1)
  - Nocturnal fear [Not Recovered/Not Resolved]

NARRATIVE: CASE EVENT DATE: 20251101
